FAERS Safety Report 12261539 (Version 1)
Quarter: 2016Q2

REPORT INFORMATION
  Report Type: Spontaneous
  Country: CA (occurrence: CA)
  Receive Date: 20160413
  Receipt Date: 20160413
  Transmission Date: 20160815
  Serious: Yes (Other)
  Sender: FDA-Public Use
  Company Number: CA-009507513-1604CAN004532

PATIENT
  Sex: Female

DRUGS (2)
  1. TEMODAL [Suspect]
     Active Substance: TEMOZOLOMIDE
     Dosage: UNK
     Route: 048
  2. TEMODAL [Suspect]
     Active Substance: TEMOZOLOMIDE
     Indication: OLIGOASTROCYTOMA
     Dosage: 285 MG, QD (5 DAYS PER CYCLE) (STRENGTH: TEMODAL DINS: 2241093, 2241094, 2241095, 2241096, 2312794)
     Route: 048
     Dates: end: 20130403

REACTIONS (3)
  - Neoplasm [Unknown]
  - Off label use [Unknown]
  - Oligoastrocytoma [Unknown]
